FAERS Safety Report 9870014 (Version 3)
Quarter: 2014Q4

REPORT INFORMATION
  Report Type: Spontaneous
  Country: US (occurrence: US)
  Receive Date: 20140205
  Receipt Date: 20141028
  Transmission Date: 20150529
  Serious: Yes (Other)
  Sender: FDA-Public Use
  Company Number: US-PFIZER INC-2014033066

PATIENT
  Age: 68 Year
  Sex: Female

DRUGS (6)
  1. LIPITOR [Suspect]
     Active Substance: ATORVASTATIN CALCIUM
     Indication: CARDIOVASCULAR EVENT PROPHYLAXIS
  2. LIPITOR [Suspect]
     Active Substance: ATORVASTATIN CALCIUM
     Indication: MYOCARDIAL INFARCTION
  3. ASPIRIN. [Concomitant]
     Active Substance: ASPIRIN
     Indication: CARDIAC DISORDER
     Dosage: 1 DF, DAILY
     Dates: start: 199501
  4. LIPITOR [Suspect]
     Active Substance: ATORVASTATIN CALCIUM
     Indication: LOW DENSITY LIPOPROTEIN INCREASED
     Dosage: 10 MG, 1X/DAY
     Route: 048
     Dates: start: 1997, end: 201208
  5. FIBER [Concomitant]
     Active Substance: PSYLLIUM HUSK
     Indication: ROUTINE HEALTH MAINTENANCE
     Dosage: 1 DF, DAILY
     Dates: start: 200001
  6. LIPITOR [Suspect]
     Active Substance: ATORVASTATIN CALCIUM
     Indication: CARDIOVASCULAR DISORDER

REACTIONS (2)
  - Type 2 diabetes mellitus [Not Recovered/Not Resolved]
  - Muscular weakness [Unknown]

NARRATIVE: CASE EVENT DATE: 20050608
